FAERS Safety Report 7035681-X (Version None)
Quarter: 2010Q4

REPORT INFORMATION
  Report Type: 
  Country: None (occurrence: None)
  Receive Date: 20101008
  Receipt Date: 20100928
  Transmission Date: 20110411
  Serious: Yes (Other)
  Sender: FDA-Public Use
  Company Number: JP-PFIZER INC-2010123296

PATIENT
  Sex: Female

DRUGS (2)
  1. GABAPEN [Suspect]
     Dosage: 300 MG/DAY
     Route: 048
     Dates: start: 20090701
  2. GABAPEN [Suspect]
     Dosage: 1000 MG, 2X/DAY
     Route: 048

REACTIONS (3)
  - ALPHA-1 ACID GLYCOPROTEIN ABNORMAL [None]
  - IMMUNOSUPPRESSION [None]
  - NASOPHARYNGITIS [None]
